FAERS Safety Report 22518549 (Version 2)
Quarter: 2023Q2

REPORT INFORMATION
  Report Type: Spontaneous
  Country: BR (occurrence: BR)
  Receive Date: 20230605
  Receipt Date: 20230613
  Transmission Date: 20230722
  Serious: Yes (Other)
  Sender: FDA-Public Use
  Company Number: BR-NOVOPROD-1071396

PATIENT
  Age: 57 Year
  Sex: Female

DRUGS (3)
  1. SAXENDA [Suspect]
     Active Substance: LIRAGLUTIDE
     Indication: Weight control
     Dosage: 0.6 MG, QD
     Dates: start: 202211
  2. SAXENDA [Suspect]
     Active Substance: LIRAGLUTIDE
     Dosage: 3 MG
     Dates: end: 2023
  3. SAXENDA [Suspect]
     Active Substance: LIRAGLUTIDE
     Dosage: INCREASED EACH WEEK UNTIL REACHED THE MAXIMUM DOSE

REACTIONS (6)
  - Hypoglycaemic unconsciousness [Unknown]
  - Onychoclasis [Unknown]
  - Decreased immune responsiveness [Unknown]
  - Headache [Unknown]
  - Abdominal pain [Unknown]
  - Weight loss poor [Unknown]
